FAERS Safety Report 11032078 (Version 1)
Quarter: 2015Q2

REPORT INFORMATION
  Report Type: Spontaneous
  Country: CN (occurrence: CN)
  Receive Date: 20150415
  Receipt Date: 20150415
  Transmission Date: 20150821
  Serious: Yes (Death)
  Sender: FDA-Public Use
  Company Number: CN-JNJFOC-20141102976

PATIENT
  Age: 72 Year
  Sex: Female

DRUGS (1)
  1. SPORANOX [Suspect]
     Active Substance: ITRACONAZOLE\SODIUM CHLORIDE
     Indication: LUNG INFECTION
     Route: 045
     Dates: start: 20141030

REACTIONS (2)
  - Cerebral haemorrhage [Fatal]
  - Incorrect route of drug administration [Unknown]
